FAERS Safety Report 4926148-0 (Version None)
Quarter: 2006Q1

REPORT INFORMATION
  Report Type: 
  Country: None (occurrence: None)
  Receive Date: 20060228
  Receipt Date: 20050825
  Transmission Date: 20060701
  Serious: Yes (Life-Threatening, Hospitalization, Disabling, Other)
  Sender: FDA-Public Use
  Company Number: US-GLAXOSMITHKLINE-A0572018A

PATIENT
  Age: 48 Year
  Sex: Female
  Weight: 80 kg

DRUGS (10)
  1. LAMICTAL [Suspect]
     Indication: BIPOLAR DISORDER
     Route: 048
     Dates: start: 20050601, end: 20050801
  2. LASIX [Concomitant]
     Route: 048
  3. SEROQUEL [Concomitant]
     Dosage: 200MG AT NIGHT
     Route: 048
  4. LIPITOR [Concomitant]
     Dosage: 20MG PER DAY
     Route: 048
  5. MS IR [Concomitant]
     Dosage: 15MG THREE TIMES PER DAY
     Route: 048
  6. PREMARIN [Concomitant]
     Dosage: .625MG PER DAY
     Route: 048
  7. PROVENTIL [Concomitant]
     Dosage: 1PUFF FOUR TIMES PER DAY
     Route: 055
  8. COMBIVENT [Concomitant]
     Route: 055
  9. EFFEXOR [Concomitant]
     Dosage: 75MG PER DAY
     Route: 048
  10. KLONOPIN [Concomitant]
     Route: 048

REACTIONS (3)
  - PAIN [None]
  - RASH [None]
  - STEVENS-JOHNSON SYNDROME [None]
